FAERS Safety Report 13003102 (Version 1)
Quarter: 2016Q4

REPORT INFORMATION
  Report Type: Spontaneous
  Country: US (occurrence: US)
  Receive Date: 20161202
  Receipt Date: 20161202
  Transmission Date: 20170207
  Serious: Yes (Hospitalization)
  Sender: FDA-Public Use
  Company Number: None

PATIENT
  Age: 61 Year
  Sex: Male
  Weight: 100.1 kg

DRUGS (1)
  1. ROPINIROLE. [Suspect]
     Active Substance: ROPINIROLE
     Indication: RESTLESS LEGS SYNDROME
     Route: 048
     Dates: start: 20160830, end: 20160913

REACTIONS (5)
  - Hallucination [None]
  - Confusional state [None]
  - Agitation [None]
  - Palpitations [None]
  - Delirium [None]

NARRATIVE: CASE EVENT DATE: 20160830
